FAERS Safety Report 23270131 (Version 1)
Quarter: 2023Q4

REPORT INFORMATION
  Report Type: Other
  Country: US (occurrence: None)
  Receive Date: 20231207
  Receipt Date: 20231207
  Transmission Date: 20240109
  Serious: Yes (Other)
  Sender: FDA-Public Use
  Company Number: US-ROCHE-3466687

PATIENT
  Age: 76 Year
  Sex: Male

DRUGS (15)
  1. ALECENSA [Suspect]
     Active Substance: ALECTINIB HYDROCHLORIDE
     Indication: Lung neoplasm malignant
     Route: 048
  2. ALBUTEROL SULFATE [Concomitant]
     Active Substance: ALBUTEROL SULFATE
  3. ELIQUIS [Concomitant]
     Active Substance: APIXABAN
  4. LIPITOR [Concomitant]
     Active Substance: ATORVASTATIN CALCIUM
  5. VITAMIN B12 [Concomitant]
     Active Substance: CYANOCOBALAMIN
  6. FOLVITE [Concomitant]
     Active Substance: FOLIC ACID
  7. HYDRODIURIL [Concomitant]
     Active Substance: HYDROCHLOROTHIAZIDE
  8. LEVOTHYROXINE [Concomitant]
     Active Substance: LEVOTHYROXINE
  9. LORATADINE [Concomitant]
     Active Substance: LORATADINE
  10. COZAAR [Concomitant]
     Active Substance: LOSARTAN POTASSIUM
  11. METADATE ER [Concomitant]
     Active Substance: METHYLPHENIDATE HYDROCHLORIDE
  12. REMERON [Concomitant]
     Active Substance: MIRTAZAPINE
  13. PROTONIX [Concomitant]
     Active Substance: PANTOPRAZOLE SODIUM
  14. FLOMAX [Concomitant]
     Active Substance: TAMSULOSIN HYDROCHLORIDE
  15. ULTRAM [Concomitant]
     Active Substance: TRAMADOL HYDROCHLORIDE

REACTIONS (14)
  - Thrombocytopenia [Unknown]
  - Arthralgia [Unknown]
  - Productive cough [Unknown]
  - Skin disorder [Unknown]
  - Deafness [Unknown]
  - Vitamin B12 deficiency [Unknown]
  - Deep vein thrombosis [Unknown]
  - Pancytopenia [Unknown]
  - Anaemia macrocytic [Unknown]
  - Blood alkaline phosphatase increased [Unknown]
  - Insomnia [Unknown]
  - Arthralgia [Unknown]
  - Skin lesion [Unknown]
  - Iron deficiency anaemia [Unknown]

NARRATIVE: CASE EVENT DATE: 20180401
